FAERS Safety Report 8843629 (Version 1)
Quarter: 2012Q4

REPORT INFORMATION
  Report Type: 
  Country: US (occurrence: US)
  Receive Date: 20121016
  Receipt Date: 20121016
  Transmission Date: 20130627
  Serious: Yes (Other)
  Sender: FDA-Public Use
  Company Number: US-ROCHE-1140377

PATIENT
  Sex: Female
  Weight: 20.5 kg

DRUGS (3)
  1. NUTROPIN [Suspect]
     Indication: PRADER-WILLI SYNDROME
     Route: 058
  2. NUTROPIN [Suspect]
     Indication: GROWTH HORMONE DEFICIENCY
  3. SYNTHROID [Concomitant]
     Route: 048

REACTIONS (5)
  - Hypotension [Unknown]
  - Insulin-like growth factor increased [Unknown]
  - Contusion [Unknown]
  - Scab [Unknown]
  - Enamel anomaly [Unknown]
